FAERS Safety Report 13884951 (Version 1)
Quarter: 2017Q3

REPORT INFORMATION
  Report Type: Spontaneous
  Country: FR (occurrence: FR)
  Receive Date: 20170821
  Receipt Date: 20170821
  Transmission Date: 20171127
  Serious: Yes (Hospitalization)
  Sender: FDA-Public Use
  Company Number: FR-VALIDUS PHARMACEUTICALS LLC-FR-2017VAL001239

PATIENT
  Age: 6 Day
  Sex: Male

DRUGS (6)
  1. HYDROCORTISONE. [Suspect]
     Active Substance: HYDROCORTISONE
     Dosage: 0.5 MG/KG, QD
  2. CEFOTAXIME SODIUM [Suspect]
     Active Substance: CEFOTAXIME SODIUM
     Indication: ANTIBIOTIC THERAPY
     Route: 042
  3. AMIKACIN SULFATE. [Suspect]
     Active Substance: AMIKACIN SULFATE
     Indication: NEONATAL INFECTION
     Dosage: UNK
     Route: 042
  4. HYDROCORTISONE. [Suspect]
     Active Substance: HYDROCORTISONE
     Indication: PROPHYLAXIS
     Dosage: 0.5 MG/KG, BID
  5. VANCOMYCIN [Suspect]
     Active Substance: VANCOMYCIN
     Indication: ANTIBIOTIC THERAPY
  6. AMOXICILLIN. [Suspect]
     Active Substance: AMOXICILLIN
     Indication: NEONATAL INFECTION

REACTIONS (8)
  - Skin lesion [Recovered/Resolved]
  - Enterococcal infection [Recovered/Resolved]
  - Scab [Recovered/Resolved]
  - Staphylococcal infection [Recovered/Resolved]
  - Catheter site infection [Recovered/Resolved]
  - Candida infection [Recovered/Resolved]
  - Aspergillus infection [Recovered/Resolved]
  - Skin necrosis [Recovered/Resolved]
